FAERS Safety Report 4771228-6 (Version None)
Quarter: 2005Q3

REPORT INFORMATION
  Report Type: 
  Country: None (occurrence: None)
  Receive Date: 20050914
  Receipt Date: 20050829
  Transmission Date: 20060218
  Serious: Yes (Death, Hospitalization)
  Sender: FDA-Public Use
  Company Number: 198120

PATIENT
  Age: 52 Year
  Sex: Female
  Weight: 56.6996 kg

DRUGS (4)
  1. AVONEX [Suspect]
     Indication: MULTIPLE SCLEROSIS
     Dosage: IM
     Route: 030
     Dates: start: 20001201, end: 20010101
  2. ZOCOR [Concomitant]
  3. BETASERON [Concomitant]
  4. STEROIDS (NOS) [Concomitant]

REACTIONS (6)
  - ADRENAL GLAND CANCER METASTATIC [None]
  - ARTHRITIS [None]
  - DECUBITUS ULCER [None]
  - INFLUENZA LIKE ILLNESS [None]
  - LUNG ADENOCARCINOMA [None]
  - RASH [None]
